FAERS Safety Report 21715602 (Version 1)
Quarter: 2022Q4

REPORT INFORMATION
  Report Type: Spontaneous
  Country: BG (occurrence: BG)
  Receive Date: 20221212
  Receipt Date: 20221212
  Transmission Date: 20230113
  Serious: Yes (Other)
  Sender: FDA-Public Use
  Company Number: BG-002147023-NVSC2022BG238359

PATIENT
  Age: 75 Year
  Sex: Female

DRUGS (2)
  1. BEOVU [Suspect]
     Active Substance: BROLUCIZUMAB-DBLL
     Indication: Neovascular age-related macular degeneration
     Dosage: UNK
     Route: 031
     Dates: start: 20220820
  2. BEOVU [Suspect]
     Active Substance: BROLUCIZUMAB-DBLL
     Dosage: UNK (SECOND LOADING DOSE)
     Route: 031
     Dates: start: 20220920

REACTIONS (13)
  - Iridocyclitis [Recovered/Resolved]
  - Endophthalmitis [Recovered/Resolved]
  - Vitreous opacities [Recovered/Resolved]
  - Ocular hyperaemia [Unknown]
  - Eye pain [Unknown]
  - Vision blurred [Unknown]
  - Visual acuity reduced [Unknown]
  - Neovascular age-related macular degeneration [Unknown]
  - Disease progression [Unknown]
  - Choroidal neovascularisation [Unknown]
  - Eye haemorrhage [Unknown]
  - Eye oedema [Unknown]
  - COVID-19 [Recovered/Resolved]

NARRATIVE: CASE EVENT DATE: 20220901
